FAERS Safety Report 9742550 (Version 1)
Quarter: 2013Q4

REPORT INFORMATION
  Report Type: Spontaneous
  Country: JP (occurrence: JP)
  Receive Date: 20131210
  Receipt Date: 20131210
  Transmission Date: 20140711
  Serious: Yes (Other)
  Sender: FDA-Public Use
  Company Number: JP-BRISTOL-MYERS SQUIBB COMPANY-19890433

PATIENT
  Sex: 0

DRUGS (1)
  1. ABILIFY [Suspect]
     Route: 048

REACTIONS (1)
  - Inappropriate antidiuretic hormone secretion [Unknown]
